FAERS Safety Report 6696139-0 (Version None)
Quarter: 2010Q2

REPORT INFORMATION
  Report Type: 
  Country: None (occurrence: None)
  Receive Date: 20100422
  Receipt Date: 20100407
  Transmission Date: 20101027
  Serious: Yes (Other)
  Sender: FDA-Public Use
  Company Number: AUR-APL-2010-01013

PATIENT
  Age: 37 Year
  Sex: Female

DRUGS (2)
  1. GABAPENTIN [Suspect]
     Dosage: 300MG, TID, ORAL
     Route: 048
     Dates: start: 20100209, end: 20100309
  2. AMITRIPTYLINE [Concomitant]

REACTIONS (2)
  - CONFUSIONAL STATE [None]
  - IRRITABILITY [None]
